FAERS Safety Report 10094590 (Version 4)
Quarter: 2014Q3

REPORT INFORMATION
  Report Type: Spontaneous
  Country: US (occurrence: None)
  Receive Date: 20140418
  Receipt Date: 20140710
  Transmission Date: 20150326
  Serious: Yes (Hospitalization, Other)
  Sender: FDA-Public Use
  Company Number: 2014-US-004224

PATIENT
  Age: 67 Year
  Sex: Female
  Weight: 77 kg

DRUGS (23)
  1. ADDERALL (AMFETAMINE ASPARTATE, AMPHETAMINE SULFATE, DEXAMFETAMINE SACCHARATE, DEXAMFETAMINE SULFATE) [Concomitant]
  2. SYNTHROID (LEVOTHRYOXINE SODIUM) [Concomitant]
  3. CYMBALTA [Concomitant]
     Active Substance: DULOXETINE HYDROCHLORIDE
  4. OMNARIS (CICLESONIDE) [Concomitant]
  5. WELCHOL (COLESEVELAM HYDROCHLORIDE) (625 MILLIGRAM, TABLET) (COLESEVELAM HYDROCHLORIDE) [Concomitant]
     Active Substance: COLESEVELAM HYDROCHLORIDE
  6. LASIX [Concomitant]
     Active Substance: FUROSEMIDE
  7. OXYCONTIN [Concomitant]
     Active Substance: OXYCODONE HYDROCHLORIDE
  8. XYREM [Suspect]
     Active Substance: SODIUM OXYBATE
     Indication: CATAPLEXY
     Route: 048
     Dates: start: 200812, end: 2008
  9. COLCRYS [Concomitant]
     Active Substance: COLCHICINE
  10. POTASSIUM (POTASSIUM) [Concomitant]
     Active Substance: POTASSIUM
  11. XYREM [Suspect]
     Active Substance: SODIUM OXYBATE
     Indication: NARCOLEPSY
     Route: 048
     Dates: start: 200812, end: 2008
  12. RESTASIS (CICLOSPORIN) [Concomitant]
  13. VITAMIN D (COLECALCIFEROL) [Concomitant]
  14. NEXIUM [Concomitant]
     Active Substance: ESOMEPRAZOLE MAGNESIUM
  15. OXYCODONE (OXYCODONE HYDROCHLORIDE) (OXYCODONE) [Concomitant]
     Active Substance: OXYCODONE
  16. PLAQUENIL (HYDROXYCHOLOROQUINE SULFATE) [Concomitant]
  17. DEXOSYN (DESOXIMETHASONE) [Concomitant]
  18. LYRICA [Concomitant]
     Active Substance: PREGABALIN
  19. MENEST (ESTROGENS CONJUGATED) [Concomitant]
  20. NUVIGIL [Concomitant]
     Active Substance: ARMODAFINIL
  21. KLOR-CON (POTASSIUM CHLORIDE) [Concomitant]
  22. SOMA [Concomitant]
     Active Substance: CARISOPRODOL
  23. PROVERA (MEDROXYPROGESTERONE ACETATE) [Concomitant]

REACTIONS (4)
  - Joint injury [None]
  - Fall [None]
  - Pain [None]
  - Knee arthroplasty [None]

NARRATIVE: CASE EVENT DATE: 20140110
